FAERS Safety Report 17408120 (Version 1)
Quarter: 2020Q1

REPORT INFORMATION
  Report Type: Spontaneous
  Country: US (occurrence: US)
  Receive Date: 20200128
  Receipt Date: 20200128
  Transmission Date: 20200409
  Serious: Yes (Hospitalization)
  Sender: FDA-Public Use
  Company Number: None

PATIENT
  Age: 73 Year
  Sex: Male
  Weight: 109 kg

DRUGS (2)
  1. IOVERSOL (IOVERSOL 320MG/ML INJ) [Suspect]
     Active Substance: IOVERSOL
     Indication: CARDIOVASCULAR EVENT PROPHYLAXIS
     Route: 042
     Dates: start: 20200123, end: 20200123
  2. CLOPIDOGREL (CLOPIDOGREL BISULFATE 75MG TAB) [Suspect]
     Active Substance: CLOPIDOGREL BISULFATE
     Indication: CARDIOVASCULAR EVENT PROPHYLAXIS
     Route: 048
     Dates: start: 20200123, end: 20200123

REACTIONS (5)
  - Feeling hot [None]
  - Swollen tongue [None]
  - Anaphylactic reaction [None]
  - Flushing [None]
  - Angioedema [None]

NARRATIVE: CASE EVENT DATE: 20200123
